FAERS Safety Report 5849510-0 (Version None)
Quarter: 2008Q3

REPORT INFORMATION
  Report Type: 
  Country: None (occurrence: None)
  Receive Date: 20080819
  Receipt Date: 20080813
  Transmission Date: 20090109
  Serious: Yes (Other)
  Sender: FDA-Public Use
  Company Number: A0742447A

PATIENT
  Age: 73 Year
  Sex: Female

DRUGS (2)
  1. ROPINIROLE [Suspect]
     Indication: PARKINSON'S DISEASE
     Dosage: .25MG TWICE PER DAY
     Route: 048
     Dates: start: 20080801
  2. NO CONCURRENT MEDICATION [Concomitant]

REACTIONS (5)
  - ABNORMAL DREAMS [None]
  - ASTHENIA [None]
  - HALLUCINATION [None]
  - NAUSEA [None]
  - PAIN IN EXTREMITY [None]
